FAERS Safety Report 8211305-0 (Version None)
Quarter: 2012Q1

REPORT INFORMATION
  Report Type: 
  Country: None (occurrence: None)
  Receive Date: 20120315
  Receipt Date: 20120312
  Transmission Date: 20120608
  Serious: No
  Sender: FDA-Public Use
  Company Number: US-PFIZER INC-2012017568

PATIENT
  Sex: Female
  Weight: 63 kg

DRUGS (2)
  1. CHANTIX [Suspect]
     Indication: TOBACCO ABUSE
     Dosage: 0.5 MG, 2X/DAY
     Route: 048
     Dates: start: 20120101, end: 20120222
  2. CHANTIX [Suspect]
     Indication: SMOKING CESSATION THERAPY
     Dosage: 0.5 MG, 1X/DAY
     Route: 048
     Dates: start: 20120112, end: 20120101

REACTIONS (11)
  - FEELING ABNORMAL [None]
  - DEPRESSED MOOD [None]
  - INCREASED APPETITE [None]
  - ABDOMINAL DISCOMFORT [None]
  - FLATULENCE [None]
  - APATHY [None]
  - NAUSEA [None]
  - ANGER [None]
  - WEIGHT INCREASED [None]
  - ABNORMAL SENSATION IN EYE [None]
  - BLOOD PRESSURE INCREASED [None]
